FAERS Safety Report 6433654-9 (Version None)
Quarter: 2009Q4

REPORT INFORMATION
  Report Type: 
  Country: None (occurrence: None)
  Receive Date: 20091110
  Receipt Date: 20091101
  Transmission Date: 20100525
  Serious: Yes (Hospitalization)
  Sender: FDA-Public Use
  Company Number: PHHO2009BR13459

PATIENT
  Sex: Female
  Weight: 68.9 kg

DRUGS (1)
  1. NEORAL [Suspect]
     Indication: RENAL TRANSPLANT
     Dosage: 50MG DAILY DOSE
     Route: 048
     Dates: start: 20080216, end: 20091231

REACTIONS (4)
  - BLOOD CREATININE INCREASED [None]
  - DRUG INEFFECTIVE [None]
  - GRAFT DYSFUNCTION [None]
  - TRANSPLANT REJECTION [None]
